FAERS Safety Report 9185581 (Version 2)
Quarter: 2013Q3

REPORT INFORMATION
  Report Type: Spontaneous
  Country: ZA (occurrence: ZA)
  Receive Date: 20130325
  Receipt Date: 20130702
  Transmission Date: 20140515
  Serious: Yes (Hospitalization)
  Sender: FDA-Public Use
  Company Number: ZA-ABBOTT-13P-143-1065596-00

PATIENT
  Age: 16 Year
  Sex: Male
  Weight: 47 kg

DRUGS (5)
  1. HUMIRA [Suspect]
     Indication: CROHN^S DISEASE
     Dosage: WEEK 0
     Route: 058
     Dates: start: 201303
  2. HUMIRA [Suspect]
     Dosage: WEEK 2
     Route: 058
  3. HUMIRA [Suspect]
     Dosage: WEEK 4
     Route: 058
  4. ENDOCORD [Concomitant]
     Indication: CROHN^S DISEASE
     Dates: start: 20130110
  5. AZAPRESS [Concomitant]
     Indication: CROHN^S DISEASE

REACTIONS (3)
  - Ileal stenosis [Recovered/Resolved]
  - Abdominal pain [Not Recovered/Not Resolved]
  - Appendicitis perforated [Recovered/Resolved]
